FAERS Safety Report 20920293 (Version 1)
Quarter: 2022Q2

REPORT INFORMATION
  Report Type: Spontaneous
  Country: ES (occurrence: ES)
  Receive Date: 20220606
  Receipt Date: 20220606
  Transmission Date: 20220721
  Serious: Yes (Other)
  Sender: FDA-Public Use
  Company Number: ES-SA-SAC20210409001710

PATIENT
  Age: 76 Year
  Sex: Female
  Weight: 67.8 kg

DRUGS (3)
  1. TRULICITY [Suspect]
     Active Substance: DULAGLUTIDE
     Indication: Type 2 diabetes mellitus
     Dosage: 1.5 MG, WEEKLY (1/W)
     Route: 065
  2. INSULIN GLARGINE [Suspect]
     Active Substance: INSULIN GLARGINE
     Indication: Type 2 diabetes mellitus
     Dosage: 28 INTERNATIONAL UNIT, DAILY
     Route: 058
     Dates: start: 20210324
  3. INSULIN GLARGINE [Suspect]
     Active Substance: INSULIN GLARGINE
     Dosage: 22 INTERNATIONAL UNIT, DAILY
     Route: 058

REACTIONS (8)
  - Choking [Unknown]
  - Flank pain [Not Recovered/Not Resolved]
  - Pain in extremity [Unknown]
  - Blood glucose fluctuation [Unknown]
  - Gait disturbance [Unknown]
  - Nausea [Recovered/Resolved]
  - Decreased appetite [Not Recovered/Not Resolved]
  - Retching [Recovering/Resolving]
